FAERS Safety Report 6084713-4 (Version None)
Quarter: 2009Q1

REPORT INFORMATION
  Report Type: 
  Country: None (occurrence: None)
  Receive Date: 20090219
  Receipt Date: 20090203
  Transmission Date: 20090719
  Serious: Yes (Other)
  Sender: FDA-Public Use
  Company Number: US-PFIZER INC-2009167372

PATIENT
  Sex: Male

DRUGS (5)
  1. XANAX [Suspect]
  2. OPANA ER [Suspect]
     Indication: INTERVERTEBRAL DISC PROTRUSION
     Dosage: 10 MG, 2X/DAY
     Dates: start: 20090112, end: 20090119
  3. OPANA [Suspect]
     Indication: INTERVERTEBRAL DISC PROTRUSION
     Dosage: 5 MG, UNK
     Dates: start: 20090112, end: 20090119
  4. ZANAFLEX [Suspect]
     Indication: INTERVERTEBRAL DISC PROTRUSION
     Dosage: 4 MG, AS NEEDED
     Dates: end: 20090121
  5. VICODIN [Suspect]

REACTIONS (4)
  - DISCOMFORT [None]
  - FEELING ABNORMAL [None]
  - HALLUCINATION, AUDITORY [None]
  - PARANOIA [None]
